FAERS Safety Report 4713794-2 (Version None)
Quarter: 2005Q3

REPORT INFORMATION
  Report Type: 
  Country: None (occurrence: None)
  Receive Date: 20050713
  Receipt Date: 20050413
  Transmission Date: 20060218
  Serious: Yes (Hospitalization)
  Sender: FDA-Public Use
  Company Number: US-MERCK-0504USA02188

PATIENT
  Age: 73 Year
  Sex: Male
  Weight: 114 kg

DRUGS (13)
  1. VIOXX [Suspect]
     Indication: ARTHRITIS
     Route: 048
     Dates: start: 19990101, end: 20040901
  2. NORVASC [Concomitant]
     Indication: CARDIAC DISORDER
     Route: 065
     Dates: start: 20010101, end: 20050101
  3. [THERAPY UNSPECIFIED] [Concomitant]
     Indication: FLUID RETENTION
     Route: 065
  4. FOLIC ACID [Concomitant]
     Indication: BLOOD PRESSURE
     Route: 065
  5. TOPROL-XL [Concomitant]
     Indication: CARDIAC DISORDER
     Route: 065
  6. ASCORBIC ACID [Concomitant]
     Indication: BLOOD PRESSURE
     Route: 065
  7. CYANOCOBALAMIN [Concomitant]
     Indication: BLOOD PRESSURE
     Route: 065
  8. PLAVIX [Concomitant]
     Indication: CARDIAC DISORDER
     Route: 065
     Dates: start: 20020101
  9. VITAMIN E [Concomitant]
     Indication: BLOOD PRESSURE
     Route: 065
  10. ATACAND [Concomitant]
     Indication: HYPERTENSION
     Route: 065
     Dates: start: 20020101, end: 20020101
  11. ASPIRIN [Concomitant]
     Route: 065
     Dates: start: 20010101
  12. ZOCOR [Concomitant]
     Indication: BLOOD CHOLESTEROL INCREASED
     Route: 065
     Dates: start: 19930101
  13. THYROXIN [Concomitant]
     Indication: THYROID DISORDER
     Route: 065
     Dates: start: 19990101, end: 19990101

REACTIONS (3)
  - CARDIAC DISORDER [None]
  - CEREBROVASCULAR ACCIDENT [None]
  - HYPERTENSION [None]
